FAERS Safety Report 5812473-8 (Version None)
Quarter: 2008Q3

REPORT INFORMATION
  Report Type: 
  Country: None (occurrence: None)
  Receive Date: 20080716
  Receipt Date: 20080716
  Transmission Date: 20090109
  Serious: Yes (Other)
  Sender: FDA-Public Use
  Company Number: None

PATIENT
  Sex: Female
  Weight: 86.1834 kg

DRUGS (4)
  1. HYDROXYCHLOROQUINE SULFATE [Suspect]
     Indication: ANAEMIA
     Dosage: 200MG BID BID PO
     Route: 048
     Dates: start: 20080601
  2. HYDROXYCHLOROQUINE SULFATE [Suspect]
     Indication: MYOSITIS
     Dosage: 200MG BID BID PO
     Route: 048
     Dates: start: 20080601
  3. HYDROXYCHLOROQUINE SULFATE [Suspect]
     Indication: SYSTEMIC LUPUS ERYTHEMATOSUS
     Dosage: 200MG BID BID PO
     Route: 048
     Dates: start: 20080601
  4. PREDNISONE [Concomitant]

REACTIONS (1)
  - RASH [None]
